FAERS Safety Report 9066709 (Version 1)
Quarter: 2013Q1

REPORT INFORMATION
  Report Type: Report from Study
  Country: US (occurrence: US)
  Receive Date: 20130131
  Receipt Date: 20130131
  Transmission Date: 20140127
  Serious: No
  Sender: FDA-Public Use
  Company Number: US-ABBOTT-12P-163-1009484-00

PATIENT
  Age: 41 Year
  Sex: Female

DRUGS (5)
  1. HUMIRA [Suspect]
     Indication: CROHN^S DISEASE
     Dates: start: 20120906
  2. HUMIRA [Suspect]
     Dates: start: 201212
  3. CELEXA [Concomitant]
     Indication: DEPRESSION
     Dosage: 20 MG DAILY
  4. KLONOPIN [Concomitant]
     Indication: PANIC ATTACK
     Dosage: 1 MG TWO TO THREE TIMES DAILY AS REQUIRED
  5. ULTRAM [Concomitant]
     Indication: PAIN
     Dosage: 50 MG 1 TABLET EVERY 4 HOURS AS REQUIRED

REACTIONS (2)
  - Somnolence [Unknown]
  - Herpes zoster [Recovered/Resolved]
